FAERS Safety Report 14553744 (Version 1)
Quarter: 2018Q1

REPORT INFORMATION
  Report Type: Spontaneous
  Country: GB (occurrence: GB)
  Receive Date: 20180220
  Receipt Date: 20180220
  Transmission Date: 20180509
  Serious: Yes (Disabling, Other)
  Sender: FDA-Public Use
  Company Number: GB-NAPPMUNDI-GBR-2018-0053454

PATIENT
  Age: 53 Year
  Sex: Male
  Weight: 76.2 kg

DRUGS (15)
  1. SENOKOT                            /01226001/ [Concomitant]
     Active Substance: SENNOSIDE B
  2. VOLTAROL [Concomitant]
     Active Substance: DICLOFENAC SODIUM
  3. POTASSIUM CHLORIDE W/SODIUM CHLORIDE [Concomitant]
     Active Substance: POTASSIUM CHLORIDE\SODIUM CHLORIDE
     Dosage: 1-3 DAILY
  4. PREGABALIN. [Suspect]
     Active Substance: PREGABALIN
     Indication: RESTLESS LEGS SYNDROME
     Dosage: 400 MG, DAILY
     Route: 048
     Dates: start: 20171107
  5. FLURBIPROFEN. [Concomitant]
     Active Substance: FLURBIPROFEN
  6. LIPITOR [Concomitant]
     Active Substance: ATORVASTATIN CALCIUM
     Dosage: UNK
  7. OXYNORM [Concomitant]
     Active Substance: OXYCODONE HYDROCHLORIDE
  8. TRAMADOL HYDROCHLORIDE. [Concomitant]
     Active Substance: TRAMADOL HYDROCHLORIDE
     Dosage: 100 MG, UNK
     Dates: start: 201703
  9. CLONAZEPAM. [Concomitant]
     Active Substance: CLONAZEPAM
     Dosage: UNK
  10. SODIUM CARBONATE [Concomitant]
     Active Substance: SODIUM CARBONATE
     Dosage: 1-3 DAILY
  11. SYSTANE (HYPROMELLOSE 2910 (4000 MPA.S)) [Concomitant]
     Active Substance: HYPROMELLOSE 2910 (4000 MPA.S)
     Dosage: 71
  12. OXYCONTIN [Suspect]
     Active Substance: OXYCODONE HYDROCHLORIDE
     Indication: PRODUCT USED FOR UNKNOWN INDICATION
     Dosage: UNK
     Route: 065
  13. CALCIUM + D3 [Concomitant]
     Active Substance: CALCIUM\CHOLECALCIFEROL
     Dosage: 88IU/2.5G
  14. MACROGOL 3350 [Concomitant]
     Active Substance: POLYETHYLENE GLYCOL 3350
     Dosage: 1-3 DAILY
  15. PREGABALIN. [Suspect]
     Active Substance: PREGABALIN
     Dosage: 25 MG, UNK
     Route: 048
     Dates: start: 20130315

REACTIONS (13)
  - Condition aggravated [Unknown]
  - Hypersomnia [Recovering/Resolving]
  - Dry mouth [Recovering/Resolving]
  - Pain in extremity [Unknown]
  - Constipation [Recovering/Resolving]
  - Binocular eye movement disorder [Recovering/Resolving]
  - Labelled drug-drug interaction medication error [Unknown]
  - Fatigue [Recovered/Resolved]
  - Neuralgia [Unknown]
  - Back pain [Recovering/Resolving]
  - Dysuria [Recovering/Resolving]
  - Somnolence [Recovered/Resolved]
  - Dry eye [Recovered/Resolved with Sequelae]

NARRATIVE: CASE EVENT DATE: 20130415
